FAERS Safety Report 20223020 (Version 1)
Quarter: 2021Q4

REPORT INFORMATION
  Report Type: Spontaneous
  Country: US (occurrence: US)
  Receive Date: 20211223
  Receipt Date: 20211223
  Transmission Date: 20220303
  Serious: No
  Sender: FDA-Public Use
  Company Number: US-ORGANON-O2112USA001574

PATIENT
  Age: 21 Year
  Sex: Female

DRUGS (1)
  1. NEXPLANON [Suspect]
     Active Substance: ETONOGESTREL
     Dosage: 68 MG, RIGHT ARM
     Route: 059
     Dates: start: 20210909, end: 20211001

REACTIONS (3)
  - Implant site pruritus [Unknown]
  - Implant site erythema [Unknown]
  - Implant site discharge [Unknown]

NARRATIVE: CASE EVENT DATE: 20210928
